FAERS Safety Report 5661621-1 (Version None)
Quarter: 2008Q1

REPORT INFORMATION
  Report Type: 
  Country: None (occurrence: None)
  Receive Date: 20080306
  Receipt Date: 20080219
  Transmission Date: 20080703
  Serious: Yes (Death)
  Sender: FDA-Public Use
  Company Number: 2007JP005261

PATIENT
  Age: 69 Year
  Sex: Female
  Weight: 45.5 kg

DRUGS (16)
  1. TACROLIMUS CAPSULES(TACROLIMUS CAPSULES) TACROLIMUS CAPSULES(TACROLIMU [Suspect]
     Indication: RHEUMATOID ARTHRITIS
     Dosage: 1.5 MG, UNKNOWN/D, ORAL
     Route: 048
     Dates: start: 20051222, end: 20060630
  2. PREDNISOLONE [Concomitant]
  3. SOL MEDROL (METHYLPREDNISOLONE, SUCCINATE SODIUM) [Concomitant]
  4. METHYCOBAL (MECOBALAMIN) [Concomitant]
  5. DEPAS (ETIZOLAM) [Concomitant]
  6. MUCOSTA (REBAMIPIDE) [Concomitant]
  7. MEXITIL [Concomitant]
  8. MAGNESIUM OXIDE (MAGNESIUM OXIDE) [Concomitant]
  9. JUVELA (TOCOPHERYL NICOTINATE) [Concomitant]
  10. LAC B (LACTOBACILLUS BIFIDUS, LYOPHILIZED) [Concomitant]
  11. MARZULENE S (LEVOGLUTAMIDE, SODIUM GUALENATE) [Concomitant]
  12. RISEDRONATE SODIUM [Concomitant]
  13. BAKTAR (SULFAMETHOXAZOLE, TRIMETHOPRIM) [Concomitant]
  14. ALESION (EPINASTINE HYDROCHLORIDE) [Concomitant]
  15. RABEPRAZOLE SODIUM [Concomitant]
  16. CAMLEED (ENPROSTIL) [Concomitant]

REACTIONS (2)
  - CONDITION AGGRAVATED [None]
  - INTERSTITIAL LUNG DISEASE [None]
